FAERS Safety Report 7030083-4 (Version None)
Quarter: 2010Q4

REPORT INFORMATION
  Report Type: 
  Country: None (occurrence: None)
  Receive Date: 20101006
  Receipt Date: 20100924
  Transmission Date: 20110411
  Serious: Yes (Other)
  Sender: FDA-Public Use
  Company Number: JP-PFIZER INC-2010106644

PATIENT

DRUGS (2)
  1. ZOLOFT [Suspect]
     Dosage: 25 MG, 1X/DAY
     Route: 048
  2. MYSLEE [Concomitant]
     Dosage: UNK

REACTIONS (2)
  - APHAGIA [None]
  - CHEST DISCOMFORT [None]
